FAERS Safety Report 5231024-2 (Version None)
Quarter: 2007Q1

REPORT INFORMATION
  Report Type: 
  Country: None (occurrence: None)
  Receive Date: 20070206
  Receipt Date: 20070131
  Transmission Date: 20070707
  Serious: Yes (Other)
  Sender: FDA-Public Use
  Company Number: SER/8/3580

PATIENT
  Sex: Female

DRUGS (4)
  1. PAROXETINE HCL [Suspect]
     Indication: DEPRESSION
     Dates: start: 20011101
  2. AMITRIPTYLINE HCL [Concomitant]
  3. FLUOXETINE [Concomitant]
     Indication: ANXIETY
  4. HRT [Concomitant]

REACTIONS (11)
  - ANXIETY [None]
  - APATHY [None]
  - COMPLETED SUICIDE [None]
  - DECREASED APPETITE [None]
  - DRUG WITHDRAWAL SYNDROME [None]
  - FATIGUE [None]
  - HEADACHE [None]
  - MEMORY IMPAIRMENT [None]
  - NAUSEA [None]
  - NIGHTMARE [None]
  - PANIC ATTACK [None]
